FAERS Safety Report 16290806 (Version 1)
Quarter: 2019Q2

REPORT INFORMATION
  Report Type: Spontaneous
  Country: US (occurrence: US)
  Receive Date: 20190404
  Receipt Date: 20190404
  Transmission Date: 20190711
  Serious: Yes (Other)
  Sender: FDA-Public Use
  Company Number: None

PATIENT
  Age: 67 Year
  Sex: Female
  Weight: 78.38 kg

DRUGS (1)
  1. SECRET CLINICAL STRENGTH SOFT SENSITIVE UNSCENTED [Suspect]
     Active Substance: ALUMINUM ZIRCONIUM TRICHLOROHYDREX GLY
     Indication: PRODUCT USED FOR UNKNOWN INDICATION
     Dosage: ?          OTHER FREQUENCY:QHS;?
     Route: 061
     Dates: start: 20190306

REACTIONS (5)
  - Product odour abnormal [None]
  - Asthma [None]
  - Perfume sensitivity [None]
  - Product complaint [None]
  - Product use complaint [None]

NARRATIVE: CASE EVENT DATE: 20190306
